FAERS Safety Report 12436604 (Version 1)
Quarter: 2016Q2

REPORT INFORMATION
  Report Type: Spontaneous
  Country: US (occurrence: US)
  Receive Date: 20160606
  Receipt Date: 20160606
  Transmission Date: 20160815
  Serious: No
  Sender: FDA-Public Use
  Company Number: US-GLENMARK PHARMACEUTICALS INC, USA.-2016GMK022835

PATIENT

DRUGS (1)
  1. ASHLYNA [Suspect]
     Active Substance: ETHINYL ESTRADIOL\LEVONORGESTREL
     Indication: OVARIAN CYST
     Dosage: UNK
     Route: 065

REACTIONS (4)
  - Product use issue [Unknown]
  - No adverse event [Unknown]
  - Product difficult to remove [Unknown]
  - Product packaging issue [Unknown]
